FAERS Safety Report 18208812 (Version 3)
Quarter: 2020Q4

REPORT INFORMATION
  Report Type: Spontaneous
  Country: GB (occurrence: GB)
  Receive Date: 20200828
  Receipt Date: 20201230
  Transmission Date: 20210113
  Serious: Yes (Other)
  Sender: FDA-Public Use
  Company Number: GB-DSJP-DSE-2020-124277

PATIENT
  Age: 88 Year
  Sex: Male

DRUGS (16)
  1. LUPRON DEPOT [Suspect]
     Active Substance: LEUPROLIDE ACETATE
     Indication: PULMONARY EMBOLISM
     Dosage: UNK
     Route: 065
     Dates: start: 2018
  2. SIMVASTATIN. [Suspect]
     Active Substance: SIMVASTATIN
     Indication: PROSTATE CANCER
     Dosage: UNK
     Route: 065
  3. LEUPRORELIN [Suspect]
     Active Substance: LEUPROLIDE ACETATE
     Indication: PROSTATE CANCER
  4. LISINOPRIL. [Suspect]
     Active Substance: LISINOPRIL
     Indication: PULMONARY EMBOLISM
     Dosage: UNK
     Route: 065
  5. TIABENDAZOLE [Concomitant]
     Active Substance: THIABENDAZOLE
     Indication: PRODUCT USED FOR UNKNOWN INDICATION
     Dosage: UNK
  6. ATORVASTATIN CALCIUM. [Suspect]
     Active Substance: ATORVASTATIN CALCIUM
     Indication: PULMONARY EMBOLISM
     Dosage: UNK
     Route: 065
  7. CARBOPLATIN/ETOPOSIDE [Concomitant]
     Indication: PROSTATE CANCER
     Dosage: UNK
     Dates: start: 201912
  8. EDOXABAN [Suspect]
     Active Substance: EDOXABAN TOSYLATE
     Indication: PULMONARY EMBOLISM
     Dosage: UNK
     Route: 065
  9. LUPRON DEPOT [Suspect]
     Active Substance: LEUPROLIDE ACETATE
     Indication: PROSTATE CANCER
  10. ATORVASTATIN CALCIUM. [Suspect]
     Active Substance: ATORVASTATIN CALCIUM
     Indication: PROSTATE CANCER
  11. ALLOPURINOL. [Suspect]
     Active Substance: ALLOPURINOL
     Indication: PULMONARY EMBOLISM
  12. LEUPRORELIN [Suspect]
     Active Substance: LEUPROLIDE ACETATE
     Indication: PULMONARY EMBOLISM
     Dosage: UNK
  13. ALLOPURINOL. [Suspect]
     Active Substance: ALLOPURINOL
     Indication: PROSTATE CANCER
     Dosage: UNK
     Route: 065
  14. CARBOPLATIN/ETOPOSIDE [Concomitant]
     Indication: CHEMOTHERAPY
  15. SIMVASTATIN. [Suspect]
     Active Substance: SIMVASTATIN
     Indication: PULMONARY EMBOLISM
  16. AMLODIPINE [Suspect]
     Active Substance: AMLODIPINE BESYLATE
     Indication: PULMONARY EMBOLISM
     Dosage: UNK
     Route: 065

REACTIONS (10)
  - Malignant transformation [Unknown]
  - Pulmonary embolism [Unknown]
  - Off label use [Unknown]
  - Blood urea abnormal [Unknown]
  - Lymphadenopathy [Unknown]
  - Blood electrolytes abnormal [Unknown]
  - Pelvic mass [Unknown]
  - Hydronephrosis [Unknown]
  - Disease progression [Unknown]
  - Prostate cancer recurrent [Unknown]

NARRATIVE: CASE EVENT DATE: 201912
